FAERS Safety Report 5422605-1 (Version None)
Quarter: 2007Q3

REPORT INFORMATION
  Report Type: 
  Country: None (occurrence: None)
  Receive Date: 20070820
  Receipt Date: 20070813
  Transmission Date: 20080115
  Serious: Yes (Other)
  Sender: FDA-Public Use
  Company Number: 2007SP016361

PATIENT
  Sex: Female

DRUGS (1)
  1. LOTRISONE [Suspect]
     Indication: DRUG USE FOR UNKNOWN INDICATION
     Dosage: VAG
     Route: 067

REACTIONS (3)
  - HAEMORRHAGE [None]
  - LOSS OF CONSCIOUSNESS [None]
  - VULVOVAGINAL BURNING SENSATION [None]
